FAERS Safety Report 8610584 (Version 3)
Quarter: 2012Q4

REPORT INFORMATION
  Report Type: 
  Country: US (occurrence: US)
  Receive Date: 20120612
  Receipt Date: 20121214
  Transmission Date: 20130627
  Serious: No
  Sender: FDA-Public Use
  Company Number: US-ASTRAZENECA-2012SE36326

PATIENT
  Age: 65 Year
  Sex: Female

DRUGS (3)
  1. NEXIUM [Suspect]
     Route: 048
  2. NEXIUM [Suspect]
     Dosage: GENERIC
     Route: 048
  3. OMEPRAZOLE [Suspect]
     Route: 048

REACTIONS (7)
  - Gastritis [Unknown]
  - Oesophageal pain [Not Recovered/Not Resolved]
  - Ulcer [Not Recovered/Not Resolved]
  - Dyspepsia [Unknown]
  - Hyperchlorhydria [Unknown]
  - Drug dose omission [Unknown]
  - Drug ineffective [Unknown]
